FAERS Safety Report 5743693-9 (Version None)
Quarter: 2008Q2

REPORT INFORMATION
  Report Type: 
  Country: None (occurrence: None)
  Receive Date: 20080520
  Receipt Date: 20080515
  Transmission Date: 20081010
  Serious: Yes (Other)
  Sender: FDA-Public Use
  Company Number: CA-BAYER-200817004NA

PATIENT

DRUGS (1)
  1. MIRENA [Suspect]

REACTIONS (4)
  - GASTROINTESTINAL DISORDER [None]
  - GASTROOESOPHAGEAL REFLUX DISEASE [None]
  - MATERNAL DRUGS AFFECTING FOETUS [None]
  - SWELLING [None]
